FAERS Safety Report 4727798-7 (Version None)
Quarter: 2005Q3

REPORT INFORMATION
  Report Type: 
  Country: None (occurrence: None)
  Receive Date: 20050728
  Receipt Date: 20050725
  Transmission Date: 20060218
  Serious: Yes (Other)
  Sender: FDA-Public Use
  Company Number: US-MERCK-0507USA03964

PATIENT
  Age: 51 Year
  Sex: Male
  Weight: 91 kg

DRUGS (1)
  1. VIOXX [Suspect]
     Indication: PAIN IN EXTREMITY
     Route: 048
     Dates: start: 20030601, end: 20031201

REACTIONS (1)
  - MYOCARDIAL INFARCTION [None]
